FAERS Safety Report 23570169 (Version 1)
Quarter: 2024Q1

REPORT INFORMATION
  Report Type: Spontaneous
  Country: IT (occurrence: IT)
  Receive Date: 20240227
  Receipt Date: 20240227
  Transmission Date: 20240410
  Serious: Yes (Other)
  Sender: FDA-Public Use
  Company Number: IT-SUN PHARMACEUTICAL INDUSTRIES LTD-2024RR-432156

PATIENT
  Age: 62 Year
  Sex: Male
  Weight: 75 kg

DRUGS (4)
  1. OXALIPLATIN [Suspect]
     Active Substance: OXALIPLATIN
     Indication: Colon neoplasm
     Dosage: 145 MILLIGRAM
     Route: 040
     Dates: start: 20230725
  2. LEVOLEUCOVORIN CALCIUM [Suspect]
     Active Substance: LEVOLEUCOVORIN CALCIUM
     Indication: Colon neoplasm
     Dosage: 110 MILLIGRAM
     Route: 040
     Dates: start: 202307
  3. FLUOROURACIL [Suspect]
     Active Substance: FLUOROURACIL
     Indication: Colon neoplasm
     Dosage: 700 MILLIGRAM
     Route: 040
     Dates: start: 20230725
  4. VEGZELMA [Suspect]
     Active Substance: BEVACIZUMAB-ADCD
     Indication: Colon neoplasm
     Dosage: 375 MILLIGRAM
     Route: 040
     Dates: start: 20230725

REACTIONS (11)
  - Neuropathy peripheral [Recovered/Resolved]
  - Paraesthesia [Recovering/Resolving]
  - Aphthous ulcer [Recovered/Resolved]
  - Blood pressure increased [Recovered/Resolved]
  - Trigeminal neuralgia [Recovered/Resolved]
  - Epistaxis [Recovering/Resolving]
  - Gastrointestinal motility disorder [Recovering/Resolving]
  - Fatigue [Recovering/Resolving]
  - Ageusia [Recovering/Resolving]
  - Abdominal pain [Recovering/Resolving]
  - Vomiting [Recovering/Resolving]
